FAERS Safety Report 8988105 (Version 1)
Quarter: 2012Q4

REPORT INFORMATION
  Report Type: 
  Country: AU (occurrence: AU)
  Receive Date: 20121227
  Receipt Date: 20121227
  Transmission Date: 20130627
  Serious: Yes (Disabling, Other)
  Sender: FDA-Public Use
  Company Number: AU-PFIZER INC-2012279080

PATIENT
  Age: 76 Year
  Sex: Female
  Weight: 77 kg

DRUGS (9)
  1. CADUET [Suspect]
     Indication: HYPERTENSION
     Dosage: 1 DF, daily
     Route: 048
     Dates: start: 20100129, end: 20121109
  2. CADUET [Suspect]
     Indication: HYPERLIPIDAEMIA
  3. CLOPIDOGREL [Concomitant]
     Indication: ISCHAEMIC HEART DISEASE
     Dosage: 75 mg, daily
     Route: 048
     Dates: start: 20081002
  4. COVERSYL PLUS [Concomitant]
     Indication: HYPERTENSION
     Dosage: [perindopril arginine 5mg] / [indapamide hydrochlorothiazide 1.25mg], daily
     Route: 048
     Dates: start: 2008
  5. MONODUR [Concomitant]
     Indication: ISCHAEMIC HEART DISEASE
     Dosage: 90 mg, daily
     Route: 048
     Dates: start: 20090320
  6. NOTEN [Concomitant]
     Indication: ISCHAEMIC HEART DISEASE
     Dosage: 25 mg, daily
     Route: 048
     Dates: start: 20081002
  7. NOTEN [Concomitant]
     Indication: HYPERTENSION
  8. PANADOL OSTEO [Concomitant]
     Indication: ARTHRITIS
     Dosage: 2 DF, 3x/day
     Dates: start: 2008
  9. ZOLOFT [Concomitant]
     Indication: DEPRESSION
     Dosage: 100 mg, daily
     Dates: start: 2007

REACTIONS (4)
  - Asthenopia [Recovered/Resolved]
  - Vision blurred [Recovered/Resolved]
  - Eye pain [Recovered/Resolved]
  - Ocular hyperaemia [Unknown]
